FAERS Safety Report 20549419 (Version 1)
Quarter: 2022Q1

REPORT INFORMATION
  Report Type: Spontaneous
  Country: US (occurrence: US)
  Receive Date: 20220303
  Receipt Date: 20220303
  Transmission Date: 20220423
  Serious: No
  Sender: FDA-Public Use
  Company Number: US-ALLERGAN-2128386US

PATIENT

DRUGS (1)
  1. RESTASIS [Suspect]
     Active Substance: CYCLOSPORINE
     Indication: Dry eye
     Dosage: UNK

REACTIONS (7)
  - Eye disorder [Unknown]
  - Ocular discomfort [Unknown]
  - Throat irritation [Unknown]
  - Eye swelling [Unknown]
  - Ocular hyperaemia [Unknown]
  - Pruritus [Unknown]
  - Lacrimation increased [Unknown]
